FAERS Safety Report 18307423 (Version 3)
Quarter: 2020Q4

REPORT INFORMATION
  Report Type: Spontaneous
  Country: US (occurrence: US)
  Receive Date: 20200924
  Receipt Date: 20201112
  Transmission Date: 20210113
  Serious: No
  Sender: FDA-Public Use
  Company Number: US-PFIZER INC-2020363157

PATIENT
  Age: 11 Year
  Sex: Male
  Weight: 17.24 kg

DRUGS (3)
  1. GENOTROPIN [Suspect]
     Active Substance: SOMATROPIN
     Dosage: 0.8 UNK, 1X/DAY (0.8 PEN ON HIS LEG ONCE A DAY)
  2. GENOTROPIN [Suspect]
     Active Substance: SOMATROPIN
     Dosage: UNK
  3. GENOTROPIN [Suspect]
     Active Substance: SOMATROPIN
     Indication: GROWTH RETARDATION
     Dosage: 0.8 UNK, 1X/DAY (0.8 PEN ON HIS LEG ONCE A DAY)
     Dates: start: 2019

REACTIONS (3)
  - Poor quality device used [Unknown]
  - Drug dose omission by device [Unknown]
  - Device information output issue [Unknown]

NARRATIVE: CASE EVENT DATE: 202009
